FAERS Safety Report 15094061 (Version 1)
Quarter: 2018Q2

REPORT INFORMATION
  Report Type: Spontaneous
  Country: BR (occurrence: BR)
  Receive Date: 20180629
  Receipt Date: 20180629
  Transmission Date: 20180711
  Serious: Yes (Hospitalization, Other)
  Sender: FDA-Public Use
  Company Number: BR-AMGEN-BRASP2014093523

PATIENT
  Age: 54 Year
  Sex: Female
  Weight: 73 kg

DRUGS (13)
  1. ENBREL [Suspect]
     Active Substance: ETANERCEPT
     Dosage: UNK
     Route: 065
     Dates: start: 20141115
  2. METAMUCIL [Concomitant]
     Active Substance: PLANTAGO SEED
     Dosage: 1 ^CARTRIDGE^ PER DAY
     Dates: start: 201408
  3. MODURETIC 5-50 [Concomitant]
     Active Substance: AMILORIDE HYDROCHLORIDE\HYDROCHLOROTHIAZIDE
     Dosage: 1 TABLET OF 25 MG PER DAY
     Dates: start: 2000
  4. PANTOPRAZOLE [Concomitant]
     Active Substance: PANTOPRAZOLE
     Dosage: 1 TABLET OF 20 MG PER DAY
     Dates: start: 1994
  5. CALCIUM [Concomitant]
     Active Substance: CALCIUM
     Dosage: UNK
     Dates: start: 201408
  6. ISPAGHULA EXTRACT\PSYLLIUM [Concomitant]
     Active Substance: HERBALS\PLANTAGO OVATA SEED\PLANTAGO SEED
     Dosage: 1 ^CARTRIDGE^ PER DAY
     Dates: start: 201408
  7. ENBREL [Suspect]
     Active Substance: ETANERCEPT
     Indication: RHEUMATOID ARTHRITIS
     Dosage: 50 MG, 1X/WEEK
     Route: 065
     Dates: start: 201410, end: 2014
  8. GLUCOSE MONOHYDRATE [Concomitant]
     Active Substance: DEXTROSE MONOHYDRATE
     Dosage: 1 ^CARTRIDGE^ PER DAY
     Dates: start: 201408
  9. ENBREL [Suspect]
     Active Substance: ETANERCEPT
     Dosage: 1 INJECTION/DAY
     Route: 065
  10. METICORTEN [Concomitant]
     Active Substance: PREDNISONE
     Dosage: 1 AND A HALF TABLET OF 7.5MG PER DAY
     Dates: start: 1994
  11. LOSARTAN. [Concomitant]
     Active Substance: LOSARTAN
     Indication: BLOOD PRESSURE MEASUREMENT
     Dosage: 1 TABLET OF 50 MG PER DAY
     Dates: start: 2000
  12. CITALOPRAM [Concomitant]
     Active Substance: CITALOPRAM HYDROBROMIDE
     Dosage: 1 TABLET OF 20 MG PER DAY
     Dates: start: 2004
  13. LOSARTAN. [Concomitant]
     Active Substance: LOSARTAN
     Indication: BLOOD PRESSURE MEASUREMENT

REACTIONS (6)
  - Drug ineffective [Unknown]
  - Injection site pruritus [Unknown]
  - Arthritis [Unknown]
  - Urinary tract infection [Unknown]
  - Injection site warmth [Unknown]
  - Injection site erythema [Unknown]

NARRATIVE: CASE EVENT DATE: 20141024
